FAERS Safety Report 6454771-3 (Version None)
Quarter: 2009Q4

REPORT INFORMATION
  Report Type: 
  Country: None (occurrence: None)
  Receive Date: 20091118
  Receipt Date: 20090805
  Transmission Date: 20100525
  Serious: Yes (Hospitalization)
  Sender: FDA-Public Use
  Company Number: 2009SP017607

PATIENT
  Age: 31 Year
  Sex: Female

DRUGS (2)
  1. PUREGON (FOLLITROPIN BETA) [Suspect]
     Indication: INFERTILITY
  2. SYNAREL [Suspect]

REACTIONS (2)
  - HAEMATURIA [None]
  - PANCREATITIS ACUTE [None]
